FAERS Safety Report 21831368 (Version 1)
Quarter: 2023Q1

REPORT INFORMATION
  Report Type: Spontaneous
  Country: US (occurrence: US)
  Receive Date: 20230106
  Receipt Date: 20230106
  Transmission Date: 20230418
  Serious: No
  Sender: FDA-Public Use
  Company Number: US-PFIZER INC-202300005144

PATIENT
  Age: 79 Year
  Sex: Male

DRUGS (1)
  1. HYDROXYZINE PAMOATE [Suspect]
     Active Substance: HYDROXYZINE PAMOATE
     Dosage: 25 MG, 1X/DAY (AT NIGHT)

REACTIONS (1)
  - Drug ineffective [Unknown]
